FAERS Safety Report 8054614-0 (Version None)
Quarter: 2012Q1

REPORT INFORMATION
  Report Type: 
  Country: None (occurrence: None)
  Receive Date: 20120119
  Receipt Date: 20120111
  Transmission Date: 20120608
  Serious: No
  Sender: FDA-Public Use
  Company Number: US-BIOGENIDEC-2012BI001350

PATIENT
  Sex: Female

DRUGS (2)
  1. AVONEX [Suspect]
     Indication: MULTIPLE SCLEROSIS
     Route: 030
     Dates: start: 20040507, end: 20060717
  2. AVONEX [Suspect]
     Route: 030
     Dates: start: 20110924

REACTIONS (2)
  - PAIN IN EXTREMITY [None]
  - PLANTAR FASCIITIS [None]
